FAERS Safety Report 4750689-2 (Version None)
Quarter: 2005Q3

REPORT INFORMATION
  Report Type: 
  Country: None (occurrence: None)
  Receive Date: 20050823
  Receipt Date: 20040917
  Transmission Date: 20060218
  Serious: Yes (Hospitalization)
  Sender: FDA-Public Use
  Company Number: 200417107US

PATIENT
  Sex: Female
  Weight: 111.95 kg

DRUGS (6)
  1. ARAVA [Suspect]
     Indication: RHEUMATOID ARTHRITIS
     Dosage: DOSE: UNK
     Dates: start: 20040301, end: 20040801
  2. REMICADE [Suspect]
     Indication: RHEUMATOID ARTHRITIS
     Route: 042
     Dates: start: 20040504
  3. TRAZODONE [Concomitant]
     Dosage: DOSE: UNK
  4. QUESTRAN [Concomitant]
     Dosage: DOSE: UNK
     Route: 048
  5. AZATHIOPRINE [Concomitant]
     Dosage: DOSE: UNK
  6. PREDNISONE [Concomitant]
     Dosage: DOSE: UNK

REACTIONS (6)
  - ALANINE AMINOTRANSFERASE INCREASED [None]
  - ASPARTATE AMINOTRANSFERASE INCREASED [None]
  - AUTOIMMUNE HEPATITIS [None]
  - BLOOD BILIRUBIN INCREASED [None]
  - HEPATIC FUNCTION ABNORMAL [None]
  - JAUNDICE [None]
